FAERS Safety Report 25268253 (Version 3)
Quarter: 2025Q2

REPORT INFORMATION
  Report Type: Spontaneous
  Country: FR (occurrence: FR)
  Receive Date: 20250505
  Receipt Date: 20250527
  Transmission Date: 20250717
  Serious: No
  Sender: PFIZER
  Company Number: FR-PFIZER INC-PV202500050284

PATIENT
  Age: 6 Year
  Sex: Female
  Weight: 20.3 kg

DRUGS (2)
  1. NGENLA [Suspect]
     Active Substance: SOMATROGON-GHLA
     Indication: Growth hormone deficiency
     Dosage: 12 MG, WEEKLY
     Route: 058
     Dates: start: 20241209, end: 20250422
  2. LEVOTHYROXINE [Concomitant]
     Active Substance: LEVOTHYROXINE
     Indication: Hypothyroidism
     Dosage: 3 CAPSULES, DAILY

REACTIONS (3)
  - Injection site pain [Recovered/Resolved]
  - Anxiety [Unknown]
  - Injection site erythema [Recovered/Resolved]

NARRATIVE: CASE EVENT DATE: 20241201
